FAERS Safety Report 10327787 (Version 1)
Quarter: 2014Q3

REPORT INFORMATION
  Report Type: Spontaneous
  Country: IT (occurrence: IT)
  Receive Date: 20140721
  Receipt Date: 20140721
  Transmission Date: 20150326
  Serious: Yes (Hospitalization)
  Sender: FDA-Public Use
  Company Number: IT-RANBAXY-2014RR-83695

PATIENT
  Age: 45 Year
  Sex: Female

DRUGS (3)
  1. ALPRAZOLAM. [Suspect]
     Active Substance: ALPRAZOLAM
     Indication: INTENTIONAL SELF-INJURY
     Dosage: 20 MG TOTAL
     Route: 048
     Dates: start: 20140108, end: 20140108
  2. INVEGA [Suspect]
     Active Substance: PALIPERIDONE
     Indication: INTENTIONAL SELF-INJURY
     Dosage: 14 DF TOTAL
     Route: 048
     Dates: start: 20140108, end: 20140108
  3. LORAZEPAM. [Suspect]
     Active Substance: LORAZEPAM
     Indication: INTENTIONAL SELF-INJURY
     Dosage: 25 MG TOTAL
     Route: 048
     Dates: start: 20140108, end: 20140108

REACTIONS (3)
  - Sopor [Unknown]
  - Intentional self-injury [Unknown]
  - Toxicity to various agents [Unknown]

NARRATIVE: CASE EVENT DATE: 20140108
